FAERS Safety Report 24771604 (Version 1)
Quarter: 2024Q4

REPORT INFORMATION
  Report Type: Spontaneous
  Country: RU (occurrence: RU)
  Receive Date: 20241224
  Receipt Date: 20241224
  Transmission Date: 20250115
  Serious: Yes (Hospitalization, Other)
  Sender: ALEXION PHARMACEUTICALS
  Company Number: RU-ASTRAZENECA-202412RUS015300RU

PATIENT
  Age: 36 Year

DRUGS (1)
  1. DAPAGLIFLOZIN [Suspect]
     Active Substance: DAPAGLIFLOZIN
     Indication: Type 2 diabetes mellitus
     Dosage: 10 MILLIGRAM, QD
     Route: 065

REACTIONS (8)
  - Diabetic ketoacidosis [Unknown]
  - Hypokalaemia [Unknown]
  - Metabolic dysfunction-associated liver disease [Unknown]
  - Diabetic neuropathy [Unknown]
  - Hypertension [Unknown]
  - Dyslipidaemia [Unknown]
  - Hyperuricaemia [Unknown]
  - Cholelithiasis [Unknown]
